FAERS Safety Report 16838732 (Version 1)
Quarter: 2019Q3

REPORT INFORMATION
  Report Type: Spontaneous
  Country: US (occurrence: US)
  Receive Date: 20190923
  Receipt Date: 20190923
  Transmission Date: 20191005
  Serious: No
  Sender: FDA-Public Use
  Company Number: US-VERTEX PHARMACEUTICALS-2019-008891

PATIENT
  Sex: Male

DRUGS (6)
  1. ORKAMBI [Suspect]
     Active Substance: IVACAFTOR\LUMACAFTOR
     Indication: CYSTIC FIBROSIS
     Dosage: 400/ 250MG, BID
     Route: 048
     Dates: start: 20150911
  2. NOVOLOG [Concomitant]
     Active Substance: INSULIN ASPART
  3. BASAGLAR [Concomitant]
     Active Substance: INSULIN GLARGINE
  4. CREON [Concomitant]
     Active Substance: PANCRELIPASE AMYLASE\PANCRELIPASE LIPASE\PANCRELIPASE PROTEASE
  5. CIPROFLOXACIN. [Concomitant]
     Active Substance: CIPROFLOXACIN
  6. HYPERSAL [Concomitant]
     Active Substance: SODIUM CHLORIDE

REACTIONS (1)
  - Diarrhoea [Not Recovered/Not Resolved]
